FAERS Safety Report 8805938 (Version 1)
Quarter: 2012Q4

REPORT INFORMATION
  Report Type: Spontaneous
  Country: PL (occurrence: None)
  Receive Date: 20120918
  Receipt Date: 20120918
  Transmission Date: 20130627
  Serious: Yes (Other)
  Sender: FDA-Public Use
  Company Number: INT_00123_2012

PATIENT
  Age: 81 Year
  Sex: Female

DRUGS (1)
  1. MEROPENEM [Suspect]
     Indication: URINARY TRACT INFECTION
     Dosage: (not otherwise specified))
     Route: 042
     Dates: start: 20120611, end: 20120611

REACTIONS (2)
  - Rash macular [None]
  - Oedema [None]
